FAERS Safety Report 25005694 (Version 2)
Quarter: 2025Q3

REPORT INFORMATION
  Report Type: Spontaneous
  Country: CA (occurrence: CA)
  Receive Date: 20250224
  Receipt Date: 20250826
  Transmission Date: 20251020
  Serious: Yes (Other)
  Sender: MYLAN
  Company Number: CA-MYLANLABS-2025M1015592

PATIENT
  Sex: Female

DRUGS (2)
  1. REVATIO [Suspect]
     Active Substance: SILDENAFIL CITRATE
     Indication: Pulmonary hypertension
     Dosage: 9 MILLIGRAM, TID (THREE TIMES IN A DAY)
  2. REVATIO [Suspect]
     Active Substance: SILDENAFIL CITRATE
     Indication: Univentricular heart
     Dosage: 9 MILLIGRAM, TID (THREE TIMES IN A DAY)
     Dates: start: 20250228

REACTIONS (2)
  - Off label use [Unknown]
  - Adverse event [Unknown]
